FAERS Safety Report 6934775-4 (Version None)
Quarter: 2010Q3

REPORT INFORMATION
  Report Type: 
  Country: None (occurrence: None)
  Receive Date: 20100820
  Receipt Date: 20100805
  Transmission Date: 20110219
  Serious: Yes (Hospitalization)
  Sender: FDA-Public Use
  Company Number: PHHY2010CA52101

PATIENT
  Sex: Female

DRUGS (1)
  1. ZOLEDRONIC [Suspect]
     Dosage: 5 MG,  ONCE A YEAR
     Dates: start: 20090828

REACTIONS (4)
  - ARTHRITIS BACTERIAL [None]
  - FUNGAL INFECTION [None]
  - PNEUMONIA [None]
  - URINARY TRACT INFECTION [None]
